FAERS Safety Report 7938563-1 (Version None)
Quarter: 2011Q4

REPORT INFORMATION
  Report Type: 
  Country: None (occurrence: None)
  Receive Date: 20111123
  Receipt Date: 20111115
  Transmission Date: 20120403
  Serious: Yes (Life-Threatening)
  Sender: FDA-Public Use
  Company Number: US-ASTRAZENECA-2011SE70396

PATIENT
  Age: 44 Year
  Sex: Male

DRUGS (9)
  1. PROPOFOL [Concomitant]
  2. SUCCINYLCHOLINE CHLORIDE [Concomitant]
  3. CHLORHEXIDINE GLUCONATE [Suspect]
  4. HEPARIN [Concomitant]
  5. FENTANYL [Concomitant]
  6. LATEX [Suspect]
  7. LIDOCAINE [Suspect]
  8. ALBUMIN (HUMAN) [Suspect]
  9. MIDAZOLAM [Concomitant]

REACTIONS (1)
  - ANAPHYLACTIC REACTION [None]
